FAERS Safety Report 7491571-X (Version None)
Quarter: 2011Q2

REPORT INFORMATION
  Report Type: 
  Country: None (occurrence: None)
  Receive Date: 20110519
  Receipt Date: 20110510
  Transmission Date: 20111010
  Serious: Yes (Death, Other)
  Sender: FDA-Public Use
  Company Number: ES-JNJFOC-20110504500

PATIENT
  Age: 71 Year
  Sex: Female

DRUGS (4)
  1. LEVOFLOXACIN [Suspect]
     Route: 048
     Dates: start: 20110325, end: 20110326
  2. CIPROFLOXACIN HYDROCHLORIDE [Suspect]
     Indication: PRODUCT USED FOR UNKNOWN INDICATION
     Route: 065
     Dates: start: 20110321, end: 20110325
  3. LEVOFLOXACIN [Suspect]
     Indication: DEVICE RELATED INFECTION
     Route: 042
     Dates: start: 20110321, end: 20110325
  4. LEVOFLOXACIN [Suspect]
     Route: 048
     Dates: start: 20110326

REACTIONS (2)
  - DEATH [None]
  - TOXIC EPIDERMAL NECROLYSIS [None]
